FAERS Safety Report 6866545-X (Version None)
Quarter: 2010Q2

REPORT INFORMATION
  Report Type: 
  Country: None (occurrence: None)
  Receive Date: 20100603
  Receipt Date: 20100324
  Transmission Date: 20101027
  Serious: Yes (Other)
  Sender: FDA-Public Use
  Company Number: 218163USA

PATIENT
  Age: 23 Year
  Sex: Male

DRUGS (11)
  1. PANTOPRAZOLE SODIUM [Suspect]
     Indication: GASTROOESOPHAGEAL REFLUX DISEASE
     Dosage: 40 MG, ORAL
     Route: 048
     Dates: start: 20090501
  2. SULCRALFATE [Concomitant]
  3. OMEPRAZOLE [Concomitant]
  4. RANITIDINE HYDROCHLORIDE [Concomitant]
  5. CENTRUM [Concomitant]
  6. FISH OIL [Concomitant]
  7. FLACK SEED OIL [Concomitant]
  8. PROTEIN WHEY [Concomitant]
  9. TRIBULUS [Concomitant]
  10. UNIVERSAL ANIMAL PAK [Concomitant]
  11. UNIVERSAL ANIMAL STAK [Concomitant]

REACTIONS (16)
  - AGGRESSION [None]
  - AMNESIA [None]
  - ASTHENIA [None]
  - CONFUSIONAL STATE [None]
  - DEHYDRATION [None]
  - DIARRHOEA [None]
  - DISTURBANCE IN ATTENTION [None]
  - DYSARTHRIA [None]
  - HYPOAESTHESIA [None]
  - MIGRAINE [None]
  - MUSCULAR WEAKNESS [None]
  - NAUSEA [None]
  - NIGHTMARE [None]
  - SLEEP DISORDER [None]
  - SPEECH DISORDER [None]
  - VOMITING [None]
